FAERS Safety Report 21839398 (Version 4)
Quarter: 2023Q2

REPORT INFORMATION
  Report Type: Spontaneous
  Country: US (occurrence: US)
  Receive Date: 20230109
  Receipt Date: 20230418
  Transmission Date: 20230721
  Serious: Yes (Hospitalization)
  Sender: FDA-Public Use
  Company Number: US-KARYOPHARM-2022KPT001514

PATIENT

DRUGS (17)
  1. XPOVIO [Suspect]
     Active Substance: SELINEXOR
     Indication: Plasma cell myeloma
     Dosage: 80 MG, WEEKLY
     Route: 048
     Dates: start: 20221025, end: 202304
  2. KEPPRA [Concomitant]
     Active Substance: LEVETIRACETAM
  3. XANAX [Concomitant]
     Active Substance: ALPRAZOLAM
  4. SINGULAIR [Concomitant]
     Active Substance: MONTELUKAST SODIUM
  5. TOBRADEX [Concomitant]
     Active Substance: DEXAMETHASONE\TOBRAMYCIN
  6. LIDODERM [Concomitant]
     Active Substance: LIDOCAINE
  7. GABAPENTIN [Concomitant]
     Active Substance: GABAPENTIN
  8. ONDANSETRON [Concomitant]
     Active Substance: ONDANSETRON
  9. ELIQUIS [Concomitant]
     Active Substance: APIXABAN
  10. AMLODIPINE [Concomitant]
     Active Substance: AMLODIPINE BESYLATE
  11. NYSTATIN [Concomitant]
     Active Substance: NYSTATIN
  12. LUNESTA [Concomitant]
     Active Substance: ESZOPICLONE
  13. MEGESTROL [Concomitant]
     Active Substance: MEGESTROL
  14. DEXAMETHASONE [Concomitant]
     Active Substance: DEXAMETHASONE
  15. KYPROLIS [Concomitant]
     Active Substance: CARFILZOMIB
  16. OMEPRAZOLE [Concomitant]
     Active Substance: OMEPRAZOLE
  17. POTASSIUM CHLORIDE [Concomitant]
     Active Substance: POTASSIUM CHLORIDE

REACTIONS (8)
  - Haemoptysis [Unknown]
  - Dehydration [Unknown]
  - Headache [Unknown]
  - Incontinence [Unknown]
  - Pain [Unknown]
  - Constipation [Not Recovered/Not Resolved]
  - Fatigue [Unknown]
  - Product dose omission issue [Unknown]

NARRATIVE: CASE EVENT DATE: 20220101
